FAERS Safety Report 15508677 (Version 2)
Quarter: 2019Q1

REPORT INFORMATION
  Report Type: Spontaneous
  Country: US (occurrence: US)
  Receive Date: 20181016
  Receipt Date: 20190129
  Transmission Date: 20190417
  Serious: No
  Sender: FDA-Public Use
  Company Number: US-GILEAD-2018-0368903

PATIENT
  Age: 58 Year
  Sex: Male

DRUGS (5)
  1. IBUPROFEN. [Concomitant]
     Active Substance: IBUPROFEN
  2. LISINOPRIL. [Concomitant]
     Active Substance: LISINOPRIL
  3. EPCLUSA [Suspect]
     Active Substance: SOFOSBUVIR\VELPATASVIR
     Indication: CHRONIC HEPATITIS C
     Dosage: 1 DF, UNK
     Route: 048
     Dates: start: 201809, end: 201812
  4. GABAPENTIN. [Concomitant]
     Active Substance: GABAPENTIN
  5. MELOXICAM. [Concomitant]
     Active Substance: MELOXICAM

REACTIONS (4)
  - Swelling [Unknown]
  - Product dose omission [Recovered/Resolved]
  - Tenderness [Unknown]
  - Product dose omission [Unknown]
